FAERS Safety Report 4510051-4 (Version None)
Quarter: 2004Q4

REPORT INFORMATION
  Report Type: 
  Country: None (occurrence: None)
  Receive Date: 20041119
  Receipt Date: 20041110
  Transmission Date: 20050328
  Serious: Yes (Hospitalization)
  Sender: FDA-Public Use
  Company Number: STA-AE-04-MTX-556

PATIENT
  Age: 34 Year
  Sex: Female

DRUGS (3)
  1. METHOTREXATE [Suspect]
     Indication: POLYARTHRITIS
  2. ENBREL [Suspect]
     Indication: POLYARTHRITIS
     Dosage: SC
     Route: 058
  3. HYDROXYCHLOROQUINE SULFATE [Suspect]
     Indication: POLYARTHRITIS
     Dosage: ORAL
     Route: 048

REACTIONS (1)
  - UVEITIS [None]
